FAERS Safety Report 11835535 (Version 1)
Quarter: 2015Q4

REPORT INFORMATION
  Report Type: Spontaneous
  Country: US (occurrence: US)
  Receive Date: 20151215
  Receipt Date: 20151215
  Transmission Date: 20160305
  Serious: Yes (Death)
  Sender: FDA-Public Use
  Company Number: US-PAR PHARMACEUTICAL COMPANIES-2015SCPR014685

PATIENT
  Age: 31 Year
  Sex: Female

DRUGS (1)
  1. VENLAFAXINE HYDROCHLORIDE. [Suspect]
     Active Substance: VENLAFAXINE HYDROCHLORIDE
     Indication: PRODUCT USE ISSUE
     Dosage: UNK UNK, UNKNOWN
     Route: 048

REACTIONS (15)
  - Completed suicide [Fatal]
  - Pulseless electrical activity [Fatal]
  - Overdose [Fatal]
  - Cardiac arrest [Fatal]
  - Mydriasis [Fatal]
  - Ventricular fibrillation [Fatal]
  - Blood glucose decreased [Fatal]
  - Bradycardia [Fatal]
  - Confusional state [Unknown]
  - Haemoglobin decreased [Unknown]
  - Toxicity to various agents [Fatal]
  - Death [Fatal]
  - Atrial fibrillation [Fatal]
  - Seizure [Fatal]
  - Agitation [Unknown]

NARRATIVE: CASE EVENT DATE: 2014
